FAERS Safety Report 5011969-9 (Version None)
Quarter: 2006Q2

REPORT INFORMATION
  Report Type: 
  Country: None (occurrence: None)
  Receive Date: 20060526
  Receipt Date: 20060426
  Transmission Date: 20061013
  Serious: Yes (Hospitalization)
  Sender: FDA-Public Use
  Company Number: JP-MERCK-0605USA02851

PATIENT
  Age: 59 Year
  Sex: Male

DRUGS (5)
  1. PRIMPERAN TAB [Concomitant]
     Route: 042
     Dates: start: 20060421, end: 20060424
  2. SODIUM CHLORIDE [Concomitant]
     Route: 042
     Dates: start: 20060417, end: 20060426
  3. ELECTROLYTES (UNSPECIFIED) AND SODIUM LACTATE [Concomitant]
     Route: 041
     Dates: start: 20060417, end: 20060426
  4. PLASMANATE [Concomitant]
     Route: 041
     Dates: start: 20060424, end: 20060425
  5. PEPCID [Suspect]
     Route: 042
     Dates: start: 20060422, end: 20060425

REACTIONS (1)
  - WERNICKE'S ENCEPHALOPATHY [None]
